FAERS Safety Report 15175866 (Version 1)
Quarter: 2018Q3

REPORT INFORMATION
  Report Type: Spontaneous
  Country: US (occurrence: US)
  Receive Date: 20180720
  Receipt Date: 20180720
  Transmission Date: 20181010
  Serious: No
  Sender: FDA-Public Use
  Company Number: US-SEPTODONT-201704446

PATIENT
  Age: 88 Year
  Sex: Female

DRUGS (1)
  1. LIDOCAINE OINTMENT [Suspect]
     Active Substance: LIDOCAINE
     Indication: LOCAL ANAESTHESIA
     Dosage: THE PATIENT^S MAID RUBBED THE SUSPECT DRUG ALL OVER THE PATIENT^S LEGS.
     Route: 061
     Dates: start: 201712, end: 201712

REACTIONS (6)
  - Peripheral swelling [Not Recovered/Not Resolved]
  - Drug ineffective [Recovered/Resolved]
  - Pain in extremity [Recovered/Resolved]
  - Tremor [Recovered/Resolved]
  - Accidental overdose [Recovered/Resolved]
  - Nausea [Recovered/Resolved]

NARRATIVE: CASE EVENT DATE: 201712
